FAERS Safety Report 9649741 (Version 1)
Quarter: 2013Q4

REPORT INFORMATION
  Report Type: Report from Study
  Country: DE (occurrence: DE)
  Receive Date: 20131028
  Receipt Date: 20131028
  Transmission Date: 20140711
  Serious: Yes (Death)
  Sender: FDA-Public Use
  Company Number: DE-BAXTER-2013BAX042646

PATIENT
  Sex: 0

DRUGS (7)
  1. ENDOXAN 1G [Suspect]
     Indication: HODGKIN^S DISEASE
     Route: 065
  2. BLEOMYCIN [Suspect]
     Indication: HODGKIN^S DISEASE
     Route: 065
  3. ETOPOSIDE [Suspect]
     Indication: HODGKIN^S DISEASE
     Route: 065
  4. DOXORUBICIN [Suspect]
     Indication: HODGKIN^S DISEASE
     Route: 065
  5. VINCRISTINE [Suspect]
     Indication: HODGKIN^S DISEASE
     Route: 065
  6. PROCARBAZINE [Suspect]
     Indication: HODGKIN^S DISEASE
     Route: 065
  7. PREDNISONE [Suspect]
     Indication: HODGKIN^S DISEASE
     Route: 065

REACTIONS (1)
  - Neutropenic infection [Fatal]
